FAERS Safety Report 7275075-5 (Version None)
Quarter: 2011Q1

REPORT INFORMATION
  Report Type: 
  Country: None (occurrence: None)
  Receive Date: 20110204
  Receipt Date: 20110121
  Transmission Date: 20110831
  Serious: Yes (Other)
  Sender: FDA-Public Use
  Company Number: PHFR2011GB00847

PATIENT
  Sex: Male

DRUGS (1)
  1. CLOZARIL [Suspect]
     Indication: SCHIZOPHRENIA
     Dosage: UNK
     Route: 048
     Dates: start: 20110118, end: 20110121

REACTIONS (5)
  - HYPERHIDROSIS [None]
  - NEUTROPHIL COUNT DECREASED [None]
  - CYANOSIS [None]
  - CARDIAC DISORDER [None]
  - WHITE BLOOD CELL COUNT DECREASED [None]
